FAERS Safety Report 4502438-0 (Version None)
Quarter: 2004Q4

REPORT INFORMATION
  Report Type: 
  Country: None (occurrence: None)
  Receive Date: 20041110
  Receipt Date: 20041026
  Transmission Date: 20050328
  Serious: Yes (Other)
  Sender: FDA-Public Use
  Company Number: 209284

PATIENT
  Age: 45 Year
  Sex: Female

DRUGS (8)
  1. HERCEPTIN [Suspect]
     Indication: BREAST CANCER
     Dosage: 8 MG/KG, SINGLE, INTRAVENOUS; 6MG/KG, Q3W, INTRAVENOUS
     Route: 042
     Dates: start: 20031023, end: 20031023
  2. HERCEPTIN [Suspect]
     Indication: BREAST CANCER
     Dosage: 8 MG/KG, SINGLE, INTRAVENOUS; 6MG/KG, Q3W, INTRAVENOUS
     Route: 042
     Dates: start: 20031113, end: 20040730
  3. HERCEPTIN [Suspect]
     Indication: BREAST CANCER
     Dosage: 8 MG/KG, SINGLE, INTRAVENOUS; 6MG/KG, Q3W, INTRAVENOUS
     Route: 042
     Dates: start: 20040825, end: 20040825
  4. MULTIVITAMIN (MULTIVITAMINS NOS) [Concomitant]
  5. TAMOXIFEN CITRATE [Concomitant]
  6. VITAMIN E [Concomitant]
  7. VITAMIN D (CHOLECALCIFEROL) [Concomitant]
  8. CALCIUM (CALCIUM NOS) [Concomitant]

REACTIONS (5)
  - ABDOMINAL WALL ABSCESS [None]
  - FATIGUE [None]
  - HYPERSENSITIVITY [None]
  - RASH GENERALISED [None]
  - THROAT TIGHTNESS [None]
